FAERS Safety Report 18668077 (Version 1)
Quarter: 2020Q4

REPORT INFORMATION
  Report Type: Spontaneous
  Country: US (occurrence: US)
  Receive Date: 20201224
  Receipt Date: 20201224
  Transmission Date: 20210114
  Serious: Yes (Hospitalization)
  Sender: FDA-Public Use
  Company Number: None

PATIENT
  Age: 23 Year
  Sex: Male
  Weight: 82.1 kg

DRUGS (9)
  1. BAMLANIVIMAB. [Suspect]
     Active Substance: BAMLANIVIMAB
     Indication: COVID-19
     Dosage: ?          OTHER FREQUENCY:ONCE;?
     Route: 042
     Dates: start: 20201223, end: 20201223
  2. AZITHROMYCIN ANHYDROUS. [Concomitant]
     Active Substance: AZITHROMYCIN ANHYDROUS
     Dates: start: 20190401
  3. EPLERENONE. [Concomitant]
     Active Substance: EPLERENONE
     Dates: start: 20200922
  4. ALBUTEROL INHALER [Concomitant]
     Active Substance: ALBUTEROL
     Dates: start: 20190502
  5. BECLEMETHASONE INHALER [Concomitant]
     Dates: start: 20200220
  6. COLISTIMETHATE INHALATION [Concomitant]
     Dates: start: 20190401
  7. LISINOPRIL. [Concomitant]
     Active Substance: LISINOPRIL
     Dates: start: 20200313
  8. BUDESONIDE-FORMOTEROL INHALER [Concomitant]
     Dates: start: 20190401
  9. ASPIRIN. [Concomitant]
     Active Substance: ASPIRIN
     Dates: start: 20190401

REACTIONS (5)
  - Vomiting [None]
  - Colitis [None]
  - Abdominal pain [None]
  - Diarrhoea haemorrhagic [None]
  - Acute kidney injury [None]

NARRATIVE: CASE EVENT DATE: 20201223
